FAERS Safety Report 4343628-X (Version None)
Quarter: 2004Q2

REPORT INFORMATION
  Report Type: 
  Country: None (occurrence: None)
  Receive Date: 20040419
  Receipt Date: 20040406
  Transmission Date: 20050107
  Serious: Yes (Other)
  Sender: FDA-Public Use
  Company Number: 2004023927

PATIENT
  Sex: Male

DRUGS (4)
  1. VIAGRA [Suspect]
     Indication: ERECTILE DYSFUNCTION
     Dosage: 100 MG (PRN), ORAL
     Route: 048
  2. BETA BLOCKING AGENTS (BETA BLOCKING AGENTS) [Concomitant]
  3. HMG COA REDUCTASE INHIBITORS (HMG COA REDUCTASE INHIBITORS) [Concomitant]
  4. FUROSEMIDE [Concomitant]

REACTIONS (1)
  - ATRIAL FIBRILLATION [None]
